FAERS Safety Report 4993176-9 (Version None)
Quarter: 2006Q1

REPORT INFORMATION
  Report Type: 
  Country: None (occurrence: None)
  Receive Date: 20060313
  Receipt Date: 20051201
  Transmission Date: 20060701
  Serious: No
  Sender: FDA-Public Use
  Company Number: 2005-BP-18543BP

PATIENT
  Age: 77 Year
  Sex: Male

DRUGS (6)
  1. SPIRIVA [Suspect]
     Indication: CHRONIC OBSTRUCTIVE PULMONARY DISEASE
     Dosage: 18 MCG (18 MCG),IH
  2. SPIRIVA [Suspect]
     Indication: EMPHYSEMA
     Dosage: 18 MCG (18 MCG),IH
  3. SPIRIVA [Suspect]
  4. METHOTREXATE [Concomitant]
  5. FOLIC ACID [Concomitant]
  6. LISINOPRIL/HCTZ (PRINZIDE /00977901/ [Concomitant]

REACTIONS (1)
  - DYSPNOEA [None]
